FAERS Safety Report 17220587 (Version 14)
Quarter: 2021Q1

REPORT INFORMATION
  Report Type: Spontaneous
  Country: US (occurrence: US)
  Receive Date: 20191231
  Receipt Date: 20210322
  Transmission Date: 20210419
  Serious: No
  Sender: FDA-Public Use
  Company Number: US-VERTEX PHARMACEUTICALS-2019-013016

PATIENT
  Age: 43 Year
  Sex: Female
  Weight: 57 kg

DRUGS (16)
  1. MAGNESIUM [Concomitant]
     Active Substance: MAGNESIUM
     Dosage: UNK
  2. TRIKAFTA [Suspect]
     Active Substance: ELEXACAFTOR\IVACAFTOR\TEZACAFTOR
     Indication: CYSTIC FIBROSIS
     Dosage: 2 ORANGE TABS (100MG ELEXA/50MG TEZA/75MG IVA)AM, 1 BLUE TABLET (150MG IVA)PM
     Route: 048
     Dates: start: 20191125
  3. ADDERALL [Concomitant]
     Active Substance: AMPHETAMINE ASPARTATE\AMPHETAMINE SULFATE\DEXTROAMPHETAMINE SACCHARATE\DEXTROAMPHETAMINE SULFATE
     Dosage: 10 MG
     Route: 048
  4. ZOLOFT [Concomitant]
     Active Substance: SERTRALINE HYDROCHLORIDE
     Dosage: UNK
  5. MYDAYIS [Concomitant]
     Active Substance: AMPHETAMINE ASPARTATE\AMPHETAMINE SULFATE\DEXTROAMPHETAMINE SACCHARATE\DEXTROAMPHETAMINE SULFATE
     Dosage: UNK
  6. VITAMIN B12 [COBAMAMIDE] [Concomitant]
     Active Substance: COBAMAMIDE
     Dosage: UNK
  7. IRON [Concomitant]
     Active Substance: IRON
     Dosage: UNK
  8. ZENPEP [Concomitant]
     Active Substance: PANCRELIPASE AMYLASE\PANCRELIPASE LIPASE\PANCRELIPASE PROTEASE
     Dosage: 20,000 UNITS
  9. LEXAPRO [Concomitant]
     Active Substance: ESCITALOPRAM OXALATE
     Dosage: 20 MG
  10. TRIKAFTA [Suspect]
     Active Substance: ELEXACAFTOR\IVACAFTOR\TEZACAFTOR
     Dosage: 2 ORANGE TABS EVERY EVENING, AND OCCASIONALLY TAKES THE BLUE TABLET
     Route: 048
  11. VITAMIN D [COLECALCIFEROL] [Concomitant]
     Active Substance: CHOLECALCIFEROL
     Dosage: UNK
  12. TRAZODONE [Concomitant]
     Active Substance: TRAZODONE HYDROCHLORIDE
     Dosage: 50 MG
  13. PULMOZYME [Concomitant]
     Active Substance: DORNASE ALFA
  14. FIASP [Concomitant]
     Active Substance: INSULIN ASPART
     Dosage: UNK
  15. EPIDUO [Concomitant]
     Active Substance: ADAPALENE\BENZOYL PEROXIDE
  16. XANAX [Concomitant]
     Active Substance: ALPRAZOLAM
     Dosage: UNK

REACTIONS (28)
  - Flatulence [Unknown]
  - Stress [Not Recovered/Not Resolved]
  - Productive cough [Not Recovered/Not Resolved]
  - Urinary tract infection [Recovered/Resolved]
  - Musculoskeletal stiffness [Not Recovered/Not Resolved]
  - Motor dysfunction [Not Recovered/Not Resolved]
  - Viral rash [Unknown]
  - Rectal haemorrhage [Recovered/Resolved]
  - Musculoskeletal discomfort [Not Recovered/Not Resolved]
  - Nephrolithiasis [Recovered/Resolved]
  - Dyspepsia [Not Recovered/Not Resolved]
  - Weight increased [Unknown]
  - Blood glucose increased [Not Recovered/Not Resolved]
  - Sleep disorder [Not Recovered/Not Resolved]
  - Intentional dose omission [Not Recovered/Not Resolved]
  - Extra dose administered [Unknown]
  - Visual impairment [Not Recovered/Not Resolved]
  - Constipation [Recovered/Resolved]
  - Somnolence [Not Recovered/Not Resolved]
  - Nasal discomfort [Not Recovered/Not Resolved]
  - Peripheral swelling [Not Recovered/Not Resolved]
  - Pain in extremity [Recovered/Resolved]
  - Joint swelling [Recovered/Resolved]
  - Fatigue [Unknown]
  - Gastrointestinal disorder [Not Recovered/Not Resolved]
  - Microcytic anaemia [Recovered/Resolved]
  - Night sweats [Unknown]
  - Dyspnoea [Recovered/Resolved]

NARRATIVE: CASE EVENT DATE: 2019
